FAERS Safety Report 9230524 (Version 3)
Quarter: 2013Q2

REPORT INFORMATION
  Report Type: Spontaneous
  Country: US (occurrence: US)
  Receive Date: 20130415
  Receipt Date: 20130620
  Transmission Date: 20140414
  Serious: Yes (Other)
  Sender: FDA-Public Use
  Company Number: US-PFIZER INC-2013112013

PATIENT
  Age: 52 Year
  Sex: Female
  Weight: 81.63 kg

DRUGS (2)
  1. LEVOXYL [Suspect]
     Indication: THYROID HORMONE REPLACEMENT THERAPY
     Dosage: 0.137 MG, 1X/DAY
     Route: 048
  2. LEVOXYL [Suspect]
     Dosage: 0.125 MG, 1X/DAY
     Route: 048

REACTIONS (3)
  - Diabetes mellitus [Unknown]
  - Drug level increased [Unknown]
  - Dysgeusia [Unknown]
